FAERS Safety Report 7331456-2 (Version None)
Quarter: 2011Q1

REPORT INFORMATION
  Report Type: 
  Country: None (occurrence: None)
  Receive Date: 20110228
  Receipt Date: 20110228
  Transmission Date: 20110831
  Serious: Yes (Other)
  Sender: FDA-Public Use
  Company Number: None

PATIENT
  Sex: Female
  Weight: 95.2554 kg

DRUGS (1)
  1. SUBOXONE [Suspect]
     Indication: DRUG DEPENDENCE
     Dosage: 16-4MG DAILY SUBLINGUAL
     Route: 060
     Dates: start: 20110202

REACTIONS (4)
  - VOMITING [None]
  - NAUSEA [None]
  - RASH PRURITIC [None]
  - DRUG HYPERSENSITIVITY [None]
